FAERS Safety Report 5071475-2 (Version None)
Quarter: 2006Q3

REPORT INFORMATION
  Report Type: 
  Country: None (occurrence: None)
  Receive Date: 20060804
  Receipt Date: 20060727
  Transmission Date: 20061208
  Serious: Yes (Hospitalization)
  Sender: FDA-Public Use
  Company Number: FR-GLAXOSMITHKLINE-B0432501A

PATIENT
  Age: 75 Year
  Sex: Female

DRUGS (7)
  1. AUGMENTIN '125' [Suspect]
     Indication: LUNG DISORDER
     Route: 048
     Dates: start: 20060207, end: 20060210
  2. GARDENAL [Suspect]
     Route: 048
     Dates: start: 20060206
  3. LASILIX [Concomitant]
     Route: 048
     Dates: start: 20060213
  4. AMLODIPINE BESYLATE [Concomitant]
     Route: 048
     Dates: start: 20060213
  5. NEXIUM [Concomitant]
     Route: 048
     Dates: start: 20060213
  6. INNOHEP [Concomitant]
     Route: 065
  7. NEO-MERCAZOLE TAB [Concomitant]
     Indication: HYPOTHYROIDISM
     Route: 065

REACTIONS (8)
  - FACE OEDEMA [None]
  - MUCOSAL EROSION [None]
  - ORAL PAIN [None]
  - PRURITUS [None]
  - RASH MACULAR [None]
  - SKIN EXFOLIATION [None]
  - TOXIC SKIN ERUPTION [None]
  - TRANSAMINASES INCREASED [None]
